FAERS Safety Report 8406476-7 (Version None)
Quarter: 2012Q2

REPORT INFORMATION
  Report Type: 
  Country: None (occurrence: None)
  Receive Date: 20120529
  Receipt Date: 20041028
  Transmission Date: 20120825
  Serious: Yes (Other)
  Sender: FDA-Public Use
  Company Number: JP-2012-12961

PATIENT
  Age: 76 Year

DRUGS (1)
  1. PLETAL [Suspect]

REACTIONS (1)
  - AORTIC ANEURYSM [None]
